FAERS Safety Report 8409257-3 (Version None)
Quarter: 2012Q2

REPORT INFORMATION
  Report Type: 
  Country: None (occurrence: None)
  Receive Date: 20120604
  Receipt Date: 20120531
  Transmission Date: 20120825
  Serious: Yes (Hospitalization, Other)
  Sender: FDA-Public Use
  Company Number: AU-AMGEN-AUSSP2012034083

PATIENT
  Sex: Male

DRUGS (3)
  1. CALCIUM [Concomitant]
  2. XGEVA [Suspect]
     Indication: METASTASES TO BONE
     Dosage: 120 MG, Q4WK
  3. VITAMIN D [Concomitant]

REACTIONS (2)
  - HUNGRY BONE SYNDROME [None]
  - HYPOCALCAEMIA [None]
